FAERS Safety Report 6141276-2 (Version None)
Quarter: 2009Q1

REPORT INFORMATION
  Report Type: 
  Country: None (occurrence: None)
  Receive Date: 20090331
  Receipt Date: 20090223
  Transmission Date: 20090719
  Serious: Yes (Other)
  Sender: FDA-Public Use
  Company Number: 2009EU000799

PATIENT
  Age: 44 Year
  Sex: Female

DRUGS (1)
  1. VESICARE [Suspect]
     Indication: HYPERTONIC BLADDER
     Dosage: 5 MG, /D, ORAL
     Route: 048
     Dates: start: 20081101, end: 20090201

REACTIONS (5)
  - ALOPECIA [None]
  - DRY MOUTH [None]
  - DYSPEPSIA [None]
  - PRURITUS [None]
  - VISION BLURRED [None]
